FAERS Safety Report 8135051-7 (Version None)
Quarter: 2012Q1

REPORT INFORMATION
  Report Type: 
  Country: None (occurrence: None)
  Receive Date: 20120214
  Receipt Date: 20120205
  Transmission Date: 20120608
  Serious: Yes (Hospitalization, Other)
  Sender: FDA-Public Use
  Company Number: IL-JNJFOC-20120203318

PATIENT
  Age: 71 Year
  Sex: Female

DRUGS (9)
  1. DISOTHIAZIDE [Concomitant]
  2. VITAMIN D [Concomitant]
  3. PRILOSEC [Concomitant]
  4. ENOXAPARIN SODIUM [Suspect]
     Indication: PRODUCT USED FOR UNKNOWN INDICATION
     Dates: end: 20120130
  5. XARELTO [Suspect]
     Indication: KNEE ARTHROPLASTY
     Dates: start: 20120201, end: 20120201
  6. AEROVENT [Concomitant]
  7. LORATADINE [Concomitant]
  8. SIMVACOR [Concomitant]
  9. CARDILOC [Concomitant]

REACTIONS (1)
  - PULMONARY EMBOLISM [None]
